FAERS Safety Report 15387966 (Version 1)
Quarter: 2018Q3

REPORT INFORMATION
  Report Type: Spontaneous
  Country: ES (occurrence: ES)
  Receive Date: 20180915
  Receipt Date: 20180915
  Transmission Date: 20181010
  Serious: Yes (Hospitalization, Other)
  Sender: FDA-Public Use
  Company Number: ES-AUROBINDO-AUR-APL-2018-045404

PATIENT
  Age: 43 Year
  Sex: Female

DRUGS (4)
  1. FLUCONAZOLE. [Suspect]
     Active Substance: FLUCONAZOLE
     Indication: EAR INFECTION
     Dosage: UNK
     Route: 048
     Dates: start: 20180730
  2. METAMIZOLE [Suspect]
     Active Substance: METAMIZOLE
     Indication: EAR INFECTION
     Dosage: UNK
     Route: 048
     Dates: start: 20180618
  3. AMOXICILLIN. [Suspect]
     Active Substance: AMOXICILLIN
     Indication: EAR INFECTION
     Dosage: UNK
     Route: 048
     Dates: start: 20180630
  4. CEFACLOR. [Suspect]
     Active Substance: CEFACLOR
     Indication: EAR INFECTION
     Dosage: UNK
     Route: 048
     Dates: start: 20180710

REACTIONS (1)
  - Erythema multiforme [Recovering/Resolving]

NARRATIVE: CASE EVENT DATE: 20180801
